FAERS Safety Report 24259471 (Version 1)
Quarter: 2024Q3

REPORT INFORMATION
  Report Type: Spontaneous
  Country: DK (occurrence: DK)
  Receive Date: 20240828
  Receipt Date: 20240828
  Transmission Date: 20241016
  Serious: Yes (Death, Other)
  Sender: DAIICHI
  Company Number: None

PATIENT
  Age: 61 Year
  Sex: Female
  Weight: 90 kg

DRUGS (8)
  1. TRASTUZUMAB DERUXTECAN [Suspect]
     Active Substance: TRASTUZUMAB DERUXTECAN
     Indication: Breast cancer
     Dosage: 3.2 MG/KG, ONCE EVERY 3 WK
     Route: 042
     Dates: start: 20240722
  2. PANTOPRAZOLE SODIUM [Concomitant]
     Active Substance: PANTOPRAZOLE SODIUM
     Indication: Gastrooesophageal reflux disease
     Dosage: 40 MG, QD
     Route: 065
     Dates: start: 2021
  3. MORPHINE SULFATE [Concomitant]
     Active Substance: MORPHINE SULFATE
     Indication: Pain
     Dosage: 20 MG, BID (0.5 DAY)
     Route: 065
     Dates: start: 20240612
  4. PREDNISOLONE [Concomitant]
     Active Substance: PREDNISOLONE
     Indication: Metastases to central nervous system
     Dosage: 75 MG, QD
     Route: 065
     Dates: start: 20240619
  5. PREDNISOLONE [Concomitant]
     Active Substance: PREDNISOLONE
     Dosage: 50 MG, QD (DECREASED FROM 75 MG TO 50 MG ON 01-AUG-2024)
     Route: 065
     Dates: start: 20240801
  6. GABAPENTIN [Concomitant]
     Active Substance: GABAPENTIN
     Indication: Neuralgia
     Dosage: 600 MG, TID (0.33 DAY)
     Route: 065
     Dates: start: 20240315
  7. ZOLEDRONIC ACID [Concomitant]
     Active Substance: ZOLEDRONIC ACID
     Indication: Prophylaxis
     Dosage: 4 MG  (ONCE EVERY 12 WK)
     Route: 065
     Dates: start: 20240719
  8. LOSARTAN POTASSIUM [Concomitant]
     Active Substance: LOSARTAN POTASSIUM
     Indication: Hypertension
     Dosage: 100 MG, QD
     Route: 065
     Dates: start: 2023

REACTIONS (10)
  - Acute kidney injury [Fatal]
  - Hepatic failure [Fatal]
  - Asphyxia [Fatal]
  - Pulmonary embolism [Fatal]
  - Cardiogenic shock [Fatal]
  - Hyperkalaemia [Fatal]
  - Cardiac arrest [Fatal]
  - Loss of consciousness [Unknown]
  - Dyspnoea [Unknown]
  - Intentional product use issue [Recovered/Resolved]

NARRATIVE: CASE EVENT DATE: 20240101
